FAERS Safety Report 18204916 (Version 2)
Quarter: 2020Q4

REPORT INFORMATION
  Report Type: Spontaneous
  Country: US (occurrence: US)
  Receive Date: 20200827
  Receipt Date: 20201218
  Transmission Date: 20210113
  Serious: Yes (Hospitalization, Disabling, Other)
  Sender: FDA-Public Use
  Company Number: US-PURDUE-USA-2020-0163141

PATIENT
  Sex: Male
  Weight: 97 kg

DRUGS (3)
  1. OXYCONTIN [Suspect]
     Active Substance: OXYCODONE HYDROCHLORIDE
     Indication: PRODUCT USED FOR UNKNOWN INDICATION
     Dosage: 60 MG, UNK
     Route: 048
     Dates: start: 2013, end: 2015
  2. HYDROCODONE BITARTRATE (SIMILAR TO NDA 206627) [Suspect]
     Active Substance: HYDROCODONE BITARTRATE
     Indication: PRODUCT USED FOR UNKNOWN INDICATION
     Dosage: 30 MG, UNK
     Route: 048
  3. PERCOCET                           /00446701/ [Suspect]
     Active Substance: ACETAMINOPHEN\OXYCODONE HYDROCHLORIDE\OXYCODONE TEREPHTHALATE
     Indication: PRODUCT USED FOR UNKNOWN INDICATION
     Dosage: UNKNOWN
     Route: 065
     Dates: start: 2013, end: 2015

REACTIONS (18)
  - Overdose [Unknown]
  - Hip surgery [Unknown]
  - Wheelchair user [Not Recovered/Not Resolved]
  - Drug dependence [Unknown]
  - Suicidal ideation [Unknown]
  - Liver disorder [Not Recovered/Not Resolved]
  - Renal disorder [Unknown]
  - Quality of life decreased [Not Recovered/Not Resolved]
  - Hepatitis C [Not Recovered/Not Resolved]
  - Walking disability [Not Recovered/Not Resolved]
  - Gastrointestinal disorder [Unknown]
  - Bladder disorder [Unknown]
  - Injury [Unknown]
  - Somnolence [Unknown]
  - Nervous system disorder [Unknown]
  - Hernia [Unknown]
  - Depression [Unknown]
  - Infection [Unknown]

NARRATIVE: CASE EVENT DATE: 2016
